FAERS Safety Report 5471485-7 (Version None)
Quarter: 2007Q3

REPORT INFORMATION
  Report Type: 
  Country: None (occurrence: None)
  Receive Date: 20070928
  Receipt Date: 20061110
  Transmission Date: 20080115
  Serious: Yes (Other)
  Sender: FDA-Public Use
  Company Number: US-BRISTOL-MYERS SQUIBB COMPANY-13576764

PATIENT
  Age: 52 Year
  Sex: Male

DRUGS (5)
  1. DEFINITY [Suspect]
  2. LISINOPRIL [Suspect]
  3. ALBUTEROL [Suspect]
  4. INDOMETHACIN [Suspect]
  5. NORVASC [Suspect]

REACTIONS (2)
  - PRURITUS [None]
  - URTICARIA [None]
